FAERS Safety Report 7889622 (Version 4)
Quarter: 2014Q3

REPORT INFORMATION
  Report Type: Spontaneous
  Country: US (occurrence: US)
  Receive Date: 20110407
  Receipt Date: 20140916
  Transmission Date: 20150326
  Serious: Yes (Other)
  Sender: FDA-Public Use
  Company Number: US-ASTRAZENECA-2010SE03299

PATIENT
  Age: 55 Year
  Sex: Female

DRUGS (3)
  1. STEROID [Concomitant]
     Active Substance: UNSPECIFIED INGREDIENT
  2. NEXIUM [Suspect]
     Active Substance: ESOMEPRAZOLE MAGNESIUM
     Indication: GASTRIC DISORDER
     Route: 048
  3. BRILINTA [Suspect]
     Active Substance: TICAGRELOR
     Route: 048

REACTIONS (8)
  - Eye disorder [Unknown]
  - Tooth loss [Unknown]
  - Multiple fractures [Unknown]
  - Myocardial infarction [Unknown]
  - Rash [Unknown]
  - Drug dose omission [Unknown]
  - Ulcer haemorrhage [Unknown]
  - Gastritis erosive [Unknown]
